FAERS Safety Report 18428506 (Version 2)
Quarter: 2021Q2

REPORT INFORMATION
  Report Type: Spontaneous
  Country: US (occurrence: US)
  Receive Date: 20201026
  Receipt Date: 20210420
  Transmission Date: 20210717
  Serious: Yes (Hospitalization, Disabling, Other)
  Sender: FDA-Public Use
  Company Number: US-SYNTHON BV-IN51PV20_55884

PATIENT
  Age: 24 Year
  Sex: Male

DRUGS (4)
  1. TAMSUMAX [Suspect]
     Active Substance: TAMSULOSIN HYDROCHLORIDE
     Indication: CALCULUS URINARY
  2. TAMSUMAX [Suspect]
     Active Substance: TAMSULOSIN HYDROCHLORIDE
     Indication: URETEROLITHIASIS
     Dosage: TAKEN THREE PILLS AFTER DISCHARGE, 8 HOURS
     Route: 065
  3. PROPOFOL. [Concomitant]
     Active Substance: PROPOFOL
     Indication: ANAESTHESIA
     Dosage: UNK
     Route: 042
  4. TAMSUMAX [Suspect]
     Active Substance: TAMSULOSIN HYDROCHLORIDE
     Indication: LOWER URINARY TRACT SYMPTOMS

REACTIONS (3)
  - Priapism [Recovered/Resolved]
  - Erectile dysfunction [Unknown]
  - Painful erection [Unknown]
